FAERS Safety Report 19573547 (Version 1)
Quarter: 2021Q3

REPORT INFORMATION
  Report Type: Spontaneous
  Country: FR (occurrence: FR)
  Receive Date: 20210717
  Receipt Date: 20210717
  Transmission Date: 20211014
  Serious: Yes (Hospitalization)
  Sender: FDA-Public Use
  Company Number: FR-ACCORD-231787

PATIENT
  Age: 83 Year
  Sex: Female
  Weight: 47 kg

DRUGS (5)
  1. POLARAMINE [Concomitant]
     Active Substance: DEXCHLORPHENIRAMINE MALEATE
     Indication: CHEMOTHERAPY SIDE EFFECT PROPHYLAXIS
     Dosage: STRENGTH 5 MG / 1 ML
     Route: 040
     Dates: start: 20210317, end: 20210317
  2. ONDANSETRON ACCORD [Concomitant]
     Active Substance: ONDANSETRON
     Indication: CHEMOTHERAPY SIDE EFFECT PROPHYLAXIS
     Dosage: STRENGTH 2 MG/ML, SOLUTION INJECTABLE
     Route: 040
     Dates: start: 20210317, end: 20210317
  3. CARBOPLATIN ACCORD [Suspect]
     Active Substance: CARBOPLATIN
     Indication: OVARIAN EPITHELIAL CANCER
     Dosage: STRENGTH: 10 MG / ML
     Route: 041
     Dates: start: 20210317, end: 20210317
  4. METHYLPREDNISOLONE MYLAN [Concomitant]
     Active Substance: METHYLPREDNISOLONE
     Indication: CHEMOTHERAPY SIDE EFFECT PROPHYLAXIS
     Dosage: STRENGTH 1 G
     Route: 040
     Dates: start: 20210317, end: 20210317
  5. PACLITAXEL KABI [Concomitant]
     Active Substance: PACLITAXEL
     Indication: OVARIAN EPITHELIAL CANCER
     Dosage: STRENGTH: 6 MG / ML
     Route: 041
     Dates: start: 20210317, end: 20210317

REACTIONS (1)
  - Infusion related reaction [Recovered/Resolved]

NARRATIVE: CASE EVENT DATE: 20210317
